FAERS Safety Report 11840438 (Version 1)
Quarter: 2015Q4

REPORT INFORMATION
  Report Type: Spontaneous
  Country: US (occurrence: US)
  Receive Date: 20151216
  Receipt Date: 20151216
  Transmission Date: 20160305
  Serious: No
  Sender: FDA-Public Use
  Company Number: US-ASTRAZENECA-2015SF21002

PATIENT
  Age: 71 Year
  Sex: Female
  Weight: 88 kg

DRUGS (5)
  1. LEVOTHYROXINE. [Concomitant]
     Active Substance: LEVOTHYROXINE
  2. PRAVASTATIN SODIUM. [Concomitant]
     Active Substance: PRAVASTATIN SODIUM
  3. LANTUS [Concomitant]
     Active Substance: INSULIN GLARGINE
  4. BYDUREON [Suspect]
     Active Substance: EXENATIDE
     Indication: DIABETES MELLITUS
     Route: 058
  5. GLIPIZIDE. [Concomitant]
     Active Substance: GLIPIZIDE

REACTIONS (5)
  - Thyroid disorder [Unknown]
  - Blood pressure increased [Unknown]
  - Product quality issue [Unknown]
  - Weight decreased [Unknown]
  - Injection site nodule [Unknown]
